FAERS Safety Report 9127735 (Version 1)
Quarter: 2013Q1

REPORT INFORMATION
  Report Type: Spontaneous
  Country: US (occurrence: US)
  Receive Date: 20130228
  Receipt Date: 20130228
  Transmission Date: 20140127
  Serious: No
  Sender: FDA-Public Use
  Company Number: US-GLAXOSMITHKLINE-A0997323A

PATIENT
  Age: 65 Year
  Sex: Female

DRUGS (1)
  1. LAMICTAL [Suspect]
     Indication: CONVULSION
     Dosage: 2TAB PER DAY
     Route: 048
     Dates: end: 201208

REACTIONS (5)
  - Abdominal distension [Recovering/Resolving]
  - Influenza like illness [Unknown]
  - Muscle spasms [Unknown]
  - Dysgeusia [Unknown]
  - Product quality issue [Unknown]
